FAERS Safety Report 4987629-7 (Version None)
Quarter: 2006Q2

REPORT INFORMATION
  Report Type: 
  Country: None (occurrence: None)
  Receive Date: 20060426
  Receipt Date: 20060419
  Transmission Date: 20061013
  Serious: Yes (Other)
  Sender: FDA-Public Use
  Company Number: 2006052719

PATIENT
  Age: 57 Year
  Sex: Male

DRUGS (1)
  1. XALATAN [Suspect]
     Indication: GLAUCOMA
     Dosage: (DAILY), OPHTHALMIC
     Route: 047
     Dates: start: 20060201, end: 20060401

REACTIONS (1)
  - CONVULSION [None]
